FAERS Safety Report 10671484 (Version 1)
Quarter: 2014Q4

REPORT INFORMATION
  Report Type: Not Available
  Country: IT (occurrence: IT)
  Receive Date: 20141223
  Receipt Date: 20141223
  Transmission Date: 20150529
  Serious: Yes (Hospitalization)
  Sender: FDA-Public Use
  Company Number: IT-MUNDIPHARMA DS AND PHARMACOVIGILANCE-GBR-2014-0024655

PATIENT
  Age: 31 Year
  Sex: Female

DRUGS (1)
  1. OXYCODONE HYDROCHLORIDE. [Suspect]
     Active Substance: OXYCODONE HYDROCHLORIDE
     Indication: BACK PAIN
     Dosage: UNK
     Route: 065
     Dates: start: 20141005, end: 20141005

REACTIONS (1)
  - Sopor [Recovered/Resolved]

NARRATIVE: CASE EVENT DATE: 20141005
